FAERS Safety Report 9865403 (Version 1)
Quarter: 2014Q1

REPORT INFORMATION
  Report Type: Spontaneous
  Country: US (occurrence: US)
  Receive Date: 20140203
  Receipt Date: 20140203
  Transmission Date: 20141002
  Serious: No
  Sender: FDA-Public Use
  Company Number: US-ALLERGAN-1308128US

PATIENT
  Age: 47 Year
  Sex: Female

DRUGS (5)
  1. RESTASIS [Suspect]
     Indication: DRY EYE
     Dosage: 2 GTT, BID
     Route: 047
  2. SYNTHROID [Concomitant]
     Indication: HYPOTHYROIDISM
     Dosage: UNK
     Route: 048
  3. SYNTHROID [Concomitant]
     Indication: HYPERTHYROIDISM
  4. CARISOPRODOL [Concomitant]
     Indication: CHONDROPATHY
     Dosage: 350 MG, 1-3 TIMES PER DAY
     Route: 048
  5. XANAX [Concomitant]
     Indication: ANXIETY
     Dosage: 1 MG, BID
     Route: 048

REACTIONS (2)
  - Lacrimal disorder [Recovered/Resolved]
  - Therapeutic response decreased [Unknown]
